FAERS Safety Report 8896446 (Version 1)
Quarter: 2012Q4

REPORT INFORMATION
  Report Type: Spontaneous
  Country: FI (occurrence: None)
  Receive Date: 20121105
  Receipt Date: 20121105
  Transmission Date: 20130627
  Serious: Yes (Hospitalization)
  Sender: FDA-Public Use
  Company Number: DSA_60724_2012

PATIENT
  Sex: Male

DRUGS (3)
  1. BUPROPION HYDROCHLORIDE [Suspect]
     Dates: start: 201207, end: 201209
  2. BUPROPION HYDROCHLORIDE [Suspect]
     Dates: start: 201209, end: 20121008
  3. BUPROPION HYDROCHLORIDE [Suspect]
     Dosage: in the am
     Dates: start: 20121009, end: 20121010

REACTIONS (1)
  - Epilepsy [None]
